FAERS Safety Report 15004922 (Version 1)
Quarter: 2018Q2

REPORT INFORMATION
  Report Type: Spontaneous
  Country: US (occurrence: US)
  Receive Date: 20180613
  Receipt Date: 20180613
  Transmission Date: 20180711
  Serious: No
  Sender: FDA-Public Use
  Company Number: US-GALDERMA-US17011302

PATIENT
  Sex: Female

DRUGS (1)
  1. PROACTIV MD ADAPALENE ACNE TREATMENT [Suspect]
     Active Substance: ADAPALENE
     Indication: ACNE
     Dosage: 0.1%
     Route: 061
     Dates: start: 20170702, end: 20170713

REACTIONS (4)
  - Skin hyperpigmentation [Not Recovered/Not Resolved]
  - Acne [Not Recovered/Not Resolved]
  - Skin fragility [Not Recovered/Not Resolved]
  - Acne cystic [Not Recovered/Not Resolved]

NARRATIVE: CASE EVENT DATE: 20170706
